FAERS Safety Report 5874117-9 (Version None)
Quarter: 2008Q3

REPORT INFORMATION
  Report Type: 
  Country: None (occurrence: None)
  Receive Date: 20080903
  Receipt Date: 20080825
  Transmission Date: 20090109
  Serious: Yes (Other)
  Sender: FDA-Public Use
  Company Number: CHNY2008NZ03228

PATIENT
  Sex: Female

DRUGS (1)
  1. HABITROL [Suspect]
     Indication: SMOKING CESSATION THERAPY
     Dosage: 21 MG, QD, TRANSDERMAL
     Route: 062
     Dates: start: 20080822, end: 20080823

REACTIONS (11)
  - BLOOD PRESSURE INCREASED [None]
  - CHEST PAIN [None]
  - DISTURBANCE IN ATTENTION [None]
  - DIZZINESS [None]
  - HEART RATE INCREASED [None]
  - MUSCULOSKELETAL DISCOMFORT [None]
  - OVERDOSE [None]
  - PAIN [None]
  - PAIN IN EXTREMITY [None]
  - TREMOR [None]
  - VISION BLURRED [None]
